FAERS Safety Report 4807798-9 (Version None)
Quarter: 2005Q4

REPORT INFORMATION
  Report Type: 
  Country: None (occurrence: None)
  Receive Date: 20051021
  Receipt Date: 20011211
  Transmission Date: 20060501
  Serious: No
  Sender: FDA-Public Use
  Company Number: US_011278923

PATIENT
  Age: 40 Year
  Sex: Female
  Weight: 65 kg

DRUGS (5)
  1. ZYPREXA [Suspect]
     Indication: SCHIZOAFFECTIVE DISORDER
     Dosage: 15 MG/DAY
     Dates: start: 20010108
  2. LITHIUM [Concomitant]
  3. BUSPAR [Concomitant]
  4. RISPERDAL [Concomitant]
  5. LEVOTHYROXINE [Concomitant]

REACTIONS (1)
  - WHITE BLOOD CELL COUNT DECREASED [None]
